FAERS Safety Report 21943769 (Version 1)
Quarter: 2023Q1

REPORT INFORMATION
  Report Type: Spontaneous
  Country: NO (occurrence: NO)
  Receive Date: 20230202
  Receipt Date: 20230202
  Transmission Date: 20230417
  Serious: Yes (Life-Threatening)
  Sender: FDA-Public Use
  Company Number: None

PATIENT
  Age: 25 Year
  Sex: Female
  Weight: 60 kg

DRUGS (1)
  1. ACETAMINOPHEN\CODEINE PHOSPHATE [Suspect]
     Active Substance: ACETAMINOPHEN\CODEINE PHOSPHATE
     Indication: Migraine
     Dosage: 2 TABLETS IN CASE OF SEVERE PAIN.?FOR ACTIVE INGREDIENT CODEINE THE STRENGTH IS 30 MILLIGRAM .FOR AC
     Dates: start: 20220622, end: 20230106

REACTIONS (7)
  - Peripheral swelling [Recovered/Resolved]
  - Rash [Recovered/Resolved]
  - Pruritus [Recovered/Resolved]
  - Cyanosis [Unknown]
  - Lip swelling [Unknown]
  - Hypoaesthesia oral [Unknown]
  - Swelling face [Unknown]

NARRATIVE: CASE EVENT DATE: 20230105
